FAERS Safety Report 16075018 (Version 2)
Quarter: 2021Q2

REPORT INFORMATION
  Report Type: Spontaneous
  Country: US (occurrence: US)
  Receive Date: 20190315
  Receipt Date: 20210503
  Transmission Date: 20210716
  Serious: Yes (Hospitalization, Other)
  Sender: FDA-Public Use
  Company Number: US-EMCURE PHARMACEUTICALS LTD-2019-EPL-0127

PATIENT
  Age: 9 Year
  Sex: Male

DRUGS (1)
  1. ONDANSETRON [Suspect]
     Active Substance: ONDANSETRON
     Dosage: 0.15 MILLIGRAM/KILOGRAM
     Route: 042

REACTIONS (5)
  - Blood urea increased [Unknown]
  - Hypoglycaemia [Unknown]
  - Metabolic acidosis [Unknown]
  - Electrocardiogram QT prolonged [Unknown]
  - Dehydration [Unknown]
